FAERS Safety Report 4284396-X (Version None)
Quarter: 2004Q1

REPORT INFORMATION
  Report Type: 
  Country: None (occurrence: None)
  Receive Date: 20040203
  Receipt Date: 20040129
  Transmission Date: 20041129
  Serious: Yes (Life-Threatening)
  Sender: FDA-Public Use
  Company Number: PHNR2004AU00522

PATIENT
  Age: 73 Year
  Sex: Female

DRUGS (12)
  1. VOLTAREN [Suspect]
     Dosage: 100 MG, QD
     Route: 054
     Dates: start: 20020515
  2. ENOXAPARIN SODIUM [Suspect]
     Indication: PULMONARY EMBOLISM
     Dosage: 160 MG, QD
     Dates: start: 20020515, end: 20020520
  3. ASPIRIN [Suspect]
     Dosage: 150 MG, QD
     Dates: start: 20020515, end: 20020520
  4. NORFLOXACIN [Suspect]
     Dosage: 800 MG, QD
     Dates: start: 20020515, end: 20020520
  5. OXAZEPAM [Concomitant]
     Dosage: 5 MG, QD
     Dates: start: 20020515
  6. SOMAC [Concomitant]
     Dosage: 40 MG, QD
     Dates: start: 20020515
  7. NORVASC [Concomitant]
  8. KARVEZIDE [Concomitant]
  9. ZOCOR [Concomitant]
  10. CAPADEX [Concomitant]
  11. ACETAMINOPHEN [Concomitant]
  12. ENDEP [Concomitant]

REACTIONS (1)
  - RECTAL HAEMORRHAGE [None]
